FAERS Safety Report 24611085 (Version 3)
Quarter: 2025Q2

REPORT INFORMATION
  Report Type: Report from Study
  Country: US (occurrence: US)
  Receive Date: 20241113
  Receipt Date: 20250426
  Transmission Date: 20250717
  Serious: Yes (Hospitalization)
  Sender: ABBVIE
  Company Number: US-ABBVIE-5999608

PATIENT
  Age: 70 Year
  Sex: Male

DRUGS (2)
  1. RINVOQ [Suspect]
     Active Substance: UPADACITINIB
     Indication: Colitis ulcerative
     Route: 048
     Dates: start: 20250122
  2. RINVOQ [Suspect]
     Active Substance: UPADACITINIB
     Indication: Colitis ulcerative
     Dosage: STRENGTH: 15MG
     Route: 048
     Dates: start: 20250301

REACTIONS (4)
  - Cold sweat [Unknown]
  - Pyrexia [Unknown]
  - Diarrhoea [Unknown]
  - Splenomegaly [Unknown]

NARRATIVE: CASE EVENT DATE: 20250101
